FAERS Safety Report 23848717 (Version 2)
Quarter: 2024Q2

REPORT INFORMATION
  Report Type: Report from Study
  Country: US (occurrence: US)
  Receive Date: 20240513
  Receipt Date: 20240521
  Transmission Date: 20240715
  Serious: Yes (Other)
  Sender: FDA-Public Use
  Company Number: US-DSJP-DSU-2019-142884

PATIENT
  Sex: Female

DRUGS (6)
  1. PEXIDARTINIB [Suspect]
     Active Substance: PEXIDARTINIB
     Indication: Giant cell tumour of tendon sheath
     Dosage: 200MG QAM, 400MG QPM
     Route: 048
     Dates: start: 20191023
  2. PEXIDARTINIB [Suspect]
     Active Substance: PEXIDARTINIB
     Indication: Synovitis
     Dosage: 400MG QAM, 200MG QPM
     Route: 048
     Dates: start: 20191023
  3. PEXIDARTINIB [Suspect]
     Active Substance: PEXIDARTINIB
     Dosage: 400 MG, BID
     Route: 048
     Dates: start: 201910
  4. PEXIDARTINIB [Suspect]
     Active Substance: PEXIDARTINIB
     Dosage: 200 MG, BID
     Route: 048
     Dates: start: 20191023
  5. PEXIDARTINIB [Suspect]
     Active Substance: PEXIDARTINIB
     Dosage: 125 MG, BID
     Route: 048
  6. PEXIDARTINIB [Suspect]
     Active Substance: PEXIDARTINIB
     Dosage: 125 MG, BID
     Route: 048
     Dates: start: 20191023

REACTIONS (32)
  - Surgery [Recovered/Resolved]
  - Heavy menstrual bleeding [Unknown]
  - Fungal infection [Unknown]
  - Diarrhoea [Recovered/Resolved]
  - Illness [Recovering/Resolving]
  - Adverse drug reaction [Recovered/Resolved]
  - Migraine [Not Recovered/Not Resolved]
  - Weight increased [Unknown]
  - Pain [Not Recovered/Not Resolved]
  - Feeling abnormal [Unknown]
  - Pain [Unknown]
  - Influenza [Recovered/Resolved]
  - Pyrexia [Recovered/Resolved]
  - Pigmentation disorder [Not Recovered/Not Resolved]
  - Malaise [Not Recovered/Not Resolved]
  - Peripheral swelling [Not Recovered/Not Resolved]
  - Periorbital swelling [Not Recovered/Not Resolved]
  - Blood pressure increased [Recovered/Resolved]
  - Hair colour changes [Not Recovered/Not Resolved]
  - Blood cholesterol increased [Recovered/Resolved]
  - Nausea [Unknown]
  - Fatigue [Not Recovered/Not Resolved]
  - Hepatic enzyme increased [Unknown]
  - COVID-19 [Recovered/Resolved]
  - Ovarian cyst [Not Recovered/Not Resolved]
  - Endodontic procedure [Recovered/Resolved]
  - Blood iron decreased [Not Recovered/Not Resolved]
  - Tumour excision [Unknown]
  - Product dose omission issue [Recovered/Resolved]
  - Product dose omission in error [Recovered/Resolved]
  - Product dose omission issue [Unknown]
  - Therapy interrupted [Recovered/Resolved]

NARRATIVE: CASE EVENT DATE: 20190101
